FAERS Safety Report 5187730-1 (Version None)
Quarter: 2006Q4

REPORT INFORMATION
  Report Type: 
  Country: None (occurrence: None)
  Receive Date: 20061214
  Receipt Date: 20061130
  Transmission Date: 20070319
  Serious: Yes (Hospitalization, Other)
  Sender: FDA-Public Use
  Company Number: VNL_0316_2006

PATIENT
  Age: 77 Year
  Sex: Male
  Weight: 74.8435 kg

DRUGS (9)
  1. APOKYN [Suspect]
     Indication: PARKINSON'S DISEASE
     Dosage: VAR 2X/DAY SC
     Route: 058
     Dates: start: 20061017, end: 20061028
  2. REQUIP [Concomitant]
  3. ARICEPT [Concomitant]
  4. WARFARIN SODIUM [Concomitant]
  5. PROTONIX [Concomitant]
  6. CARBIDOPA AND LEVODOPA [Concomitant]
  7. VITAMIN B NOS [Concomitant]
  8. STALEVO 100 [Concomitant]
  9. TIGAN [Concomitant]

REACTIONS (2)
  - FEELING COLD [None]
  - NAUSEA [None]
